FAERS Safety Report 5281223-9 (Version None)
Quarter: 2007Q1

REPORT INFORMATION
  Report Type: 
  Country: None (occurrence: None)
  Receive Date: 20070323
  Receipt Date: 20070313
  Transmission Date: 20070707
  Serious: Yes (Other)
  Sender: FDA-Public Use
  Company Number: 2006SP006780

PATIENT
  Age: 50 Year
  Sex: Female
  Weight: 90.7 kg

DRUGS (6)
  1. PEGETRON (PEGINTERFERON ALFA-2B W/RIBAVIRIN) (PEGYLATED INTERFERON ALF [Suspect]
     Indication: HEPATITIS C
     Dosage: 80 MCG;QW;SC; 1000 MG;QD;PO
     Route: 058
     Dates: start: 20060610
  2. PEGETRON (PEGINTERFERON ALFA-2B W/RIBAVIRIN) (PEGYLATED INTERFERON ALF [Suspect]
     Indication: HEPATITIS C
     Dosage: 80 MCG;QW;SC; 1000 MG;QD;PO
     Route: 058
     Dates: start: 20060610
  3. DILANTIN (CON.) [Concomitant]
  4. PAXIL (CON.) [Concomitant]
  5. VALIUM (CON.) [Concomitant]
  6. TYLENOL (CON.) [Concomitant]

REACTIONS (2)
  - DIARRHOEA [None]
  - HYPOKALAEMIA [None]
